FAERS Safety Report 13130938 (Version 1)
Quarter: 2017Q1

REPORT INFORMATION
  Report Type: Spontaneous
  Country: US (occurrence: US)
  Receive Date: 20170119
  Receipt Date: 20170119
  Transmission Date: 20170428
  Serious: Yes (Other)
  Sender: FDA-Public Use
  Company Number: US-JNJFOC-20170114823

PATIENT
  Age: 28 Year
  Sex: Male

DRUGS (3)
  1. ALLEGRA [Concomitant]
     Active Substance: FEXOFENADINE HYDROCHLORIDE
     Route: 065
  2. TRIAMTERENE. [Concomitant]
     Active Substance: TRIAMTERENE
     Route: 065
  3. STELARA [Suspect]
     Active Substance: USTEKINUMAB
     Indication: PSORIASIS
     Route: 058

REACTIONS (5)
  - Finger amputation [Not Recovered/Not Resolved]
  - Upper limb fracture [Recovered/Resolved]
  - Limb crushing injury [Recovered/Resolved]
  - Accident at work [Recovered/Resolved]
  - Hand fracture [Recovered/Resolved]

NARRATIVE: CASE EVENT DATE: 201608
